FAERS Safety Report 11247082 (Version 1)
Quarter: 2015Q3

REPORT INFORMATION
  Report Type: Spontaneous
  Country: US (occurrence: None)
  Receive Date: 20150706
  Receipt Date: 20150706
  Transmission Date: 20151125
  Serious: Yes (Other)
  Sender: FDA-Public Use
  Company Number: None

PATIENT
  Age: 34 Year
  Sex: Male
  Weight: 92.99 kg

DRUGS (1)
  1. ENCARE [Suspect]
     Active Substance: NONOXYNOL-9
     Indication: CONTRACEPTION
     Dosage: 1 CAPSULE 1 USE
     Route: 067

REACTIONS (4)
  - Hypersensitivity [None]
  - Urinary retention [None]
  - Dysuria [None]
  - Exposure via partner [None]

NARRATIVE: CASE EVENT DATE: 20150610
